FAERS Safety Report 6301436-4 (Version None)
Quarter: 2009Q3

REPORT INFORMATION
  Report Type: 
  Country: None (occurrence: None)
  Receive Date: 20090807
  Receipt Date: 20090804
  Transmission Date: 20100115
  Serious: Yes (Hospitalization)
  Sender: FDA-Public Use
  Company Number: ES-WYE-G04181409

PATIENT
  Age: 85 Year
  Sex: Female

DRUGS (6)
  1. VANDRAL RETARD [Suspect]
     Route: 048
  2. ENALAPRIL MALEATE [Concomitant]
     Indication: BLOOD PRESSURE INCREASED
     Route: 048
     Dates: end: 20080718
  3. MELOXICAM [Concomitant]
     Indication: OSTEOPOROSIS
     Route: 048
     Dates: end: 20080718
  4. NEBIVOLOL HCL [Concomitant]
     Indication: BLOOD PRESSURE INCREASED
     Route: 048
  5. AMERIDE [Interacting]
     Indication: CARDIAC FAILURE
     Route: 048
     Dates: end: 20080727
  6. OMEPRAZOLE [Concomitant]
     Indication: PROPHYLAXIS

REACTIONS (2)
  - DRUG INTERACTION [None]
  - HYPONATRAEMIA [None]
